FAERS Safety Report 8382490-5 (Version None)
Quarter: 2012Q2

REPORT INFORMATION
  Report Type: 
  Country: None (occurrence: None)
  Receive Date: 20120524
  Receipt Date: 20120516
  Transmission Date: 20120825
  Serious: Yes (Hospitalization, Other)
  Sender: FDA-Public Use
  Company Number: US-BAYER-2012-003035

PATIENT
  Age: 24 Year
  Sex: Female
  Weight: 88.43 kg

DRUGS (8)
  1. TOPAMAX [Concomitant]
  2. TOPIRAMATE [Concomitant]
     Indication: MIGRAINE
     Dosage: UNK
     Dates: start: 20080101
  3. EFFEXOR [Concomitant]
  4. YAZ [Suspect]
     Indication: PREMENSTRUAL SYNDROME
     Dosage: UNK
     Dates: start: 20080101, end: 20090101
  5. ZOMIG [Concomitant]
  6. FLUOXETINE [Concomitant]
     Indication: MIGRAINE
     Dosage: UNK
     Dates: start: 20080101
  7. YAZ [Suspect]
  8. PROZAC [Concomitant]

REACTIONS (6)
  - INJURY [None]
  - PAIN [None]
  - CHOLECYSTITIS CHRONIC [None]
  - APPENDICITIS [None]
  - FEAR [None]
  - GALLBLADDER INJURY [None]
